FAERS Safety Report 14187752 (Version 4)
Quarter: 2018Q1

REPORT INFORMATION
  Report Type: Spontaneous
  Country: US (occurrence: US)
  Receive Date: 20171114
  Receipt Date: 20180301
  Transmission Date: 20180508
  Serious: Yes (Other)
  Sender: FDA-Public Use
  Company Number: US-BAUSCH-BL-2017-031209

PATIENT
  Sex: Male
  Weight: 128.94 kg

DRUGS (5)
  1. XENAZINE [Suspect]
     Active Substance: TETRABENAZINE
     Indication: TOURETTE^S DISORDER
     Route: 048
     Dates: start: 201509
  2. FLUPHENAZINE [Suspect]
     Active Substance: FLUPHENAZINE
     Indication: TOURETTE^S DISORDER
     Route: 065
     Dates: start: 20170527, end: 20170808
  3. XENAZINE [Suspect]
     Active Substance: TETRABENAZINE
     Dosage: 12.5MG IN THE MORNING AND 25 MG IN THE EVENING.
     Route: 048
     Dates: start: 2017
  4. TETRABENAZINE. [Suspect]
     Active Substance: TETRABENAZINE
     Indication: TOURETTE^S DISORDER
     Route: 048
  5. XENAZINE [Suspect]
     Active Substance: TETRABENAZINE
     Route: 048
     Dates: start: 201708, end: 2017

REACTIONS (9)
  - Tourette^s disorder [Recovering/Resolving]
  - Treatment noncompliance [Unknown]
  - Impaired driving ability [Unknown]
  - Agitation [Unknown]
  - Disease recurrence [Recovering/Resolving]
  - Tension headache [Unknown]
  - Off label use [Not Recovered/Not Resolved]
  - Drug effect incomplete [Recovered/Resolved]
  - Eye movement disorder [Unknown]

NARRATIVE: CASE EVENT DATE: 2017
